FAERS Safety Report 18652240 (Version 1)
Quarter: 2020Q4

REPORT INFORMATION
  Report Type: Spontaneous
  Country: US (occurrence: US)
  Receive Date: 20201222
  Receipt Date: 20201222
  Transmission Date: 20210114
  Serious: Yes (Hospitalization, Other)
  Sender: FDA-Public Use
  Company Number: US-PURDUE-USA-2020-0181958

PATIENT
  Sex: Male

DRUGS (2)
  1. OXYCONTIN [Suspect]
     Active Substance: OXYCODONE HYDROCHLORIDE
     Indication: PRODUCT USED FOR UNKNOWN INDICATION
     Dosage: 40 MG, UNK
     Route: 048
     Dates: start: 20020826, end: 20030805
  2. OXYCONTIN [Suspect]
     Active Substance: OXYCODONE HYDROCHLORIDE
     Dosage: 80 MG, UNK
     Route: 048
     Dates: end: 20030805

REACTIONS (8)
  - Emotional disorder [Unknown]
  - Anxiety [Unknown]
  - Mood swings [Unknown]
  - Sleep disorder [Unknown]
  - Cognitive disorder [Unknown]
  - Psychotic disorder [Unknown]
  - Drug dependence [Unknown]
  - Major depression [Unknown]
